FAERS Safety Report 4809400-9 (Version None)
Quarter: 2005Q4

REPORT INFORMATION
  Report Type: 
  Country: None (occurrence: None)
  Receive Date: 20051018
  Receipt Date: 20051018
  Transmission Date: 20060501
  Serious: Yes (Other)
  Sender: FDA-Public Use
  Company Number: 603202

PATIENT
  Sex: Male

DRUGS (2)
  1. HEMOFIL (FACTOR VIII (ANTIHAEMOPHILIC FACTOR) [Suspect]
     Indication: HAEMOPHILIA
  2. PROPLEX T (FACTOR IX COMPLEX HUMAN) [Suspect]
     Indication: HAEMOPHILIA

REACTIONS (2)
  - ADVERSE EVENT [None]
  - PHARMACEUTICAL PRODUCT COMPLAINT [None]
